FAERS Safety Report 8167457-4 (Version None)
Quarter: 2012Q1

REPORT INFORMATION
  Report Type: 
  Country: None (occurrence: None)
  Receive Date: 20120227
  Receipt Date: 20120216
  Transmission Date: 20120608
  Serious: Yes (Death)
  Sender: FDA-Public Use
  Company Number: US-PFIZER INC-HQWYE610123SEP05

PATIENT
  Age: 62 Year

DRUGS (3)
  1. GABAPENTIN [Suspect]
     Indication: ILL-DEFINED DISORDER
     Dosage: UNSPECIFIED, ACUTE DOSAGE
     Route: 048
  2. ALCOHOL [Suspect]
     Indication: ILL-DEFINED DISORDER
     Dosage: UNSPECIFIED
     Route: 065
  3. ISOSORBIDE DINITRATE [Suspect]
     Indication: ILL-DEFINED DISORDER
     Dosage: UNSPECIFIED
     Route: 065

REACTIONS (3)
  - TOXICITY TO VARIOUS AGENTS [None]
  - INTENTIONAL DRUG MISUSE [None]
  - COMPLETED SUICIDE [None]
